FAERS Safety Report 19101764 (Version 1)
Quarter: 2021Q2

REPORT INFORMATION
  Report Type: Spontaneous
  Country: GB (occurrence: GB)
  Receive Date: 20210407
  Receipt Date: 20210407
  Transmission Date: 20210717
  Serious: No
  Sender: FDA-Public Use
  Company Number: GB-ALKEM LABORATORIES LIMITED-GB-ALKEM-2020-01727

PATIENT
  Age: 55 Year
  Sex: Male

DRUGS (1)
  1. QUETIAPINE FUMARATE. [Suspect]
     Active Substance: QUETIAPINE FUMARATE
     Indication: PRODUCT USED FOR UNKNOWN INDICATION
     Dosage: 400 MILLIGRAM, OD
     Route: 048

REACTIONS (5)
  - Paraesthesia [Unknown]
  - Product dose omission issue [Unknown]
  - Feeling abnormal [Unknown]
  - Product dispensing error [Unknown]
  - Dizziness [Unknown]
